FAERS Safety Report 15702955 (Version 1)
Quarter: 2018Q4

REPORT INFORMATION
  Report Type: Spontaneous
  Country: US (occurrence: US)
  Receive Date: 20181208
  Receipt Date: 20181208
  Transmission Date: 20190205
  Serious: Yes (Life-Threatening, Hospitalization, Disabling, Other)
  Sender: FDA-Public Use
  Company Number: None

PATIENT
  Age: 63 Year
  Sex: Male
  Weight: 101.25 kg

DRUGS (1)
  1. VALSARTAN-HCTZ 320-25 MG TAB [Suspect]
     Active Substance: HYDROCHLOROTHIAZIDE\VALSARTAN
     Indication: HYPERTENSION
     Dosage: ?          QUANTITY:1 TABLET(S);?
     Route: 048

REACTIONS (4)
  - Recalled product administered [None]
  - Non-Hodgkin^s lymphoma [None]
  - Product substitution issue [None]
  - Neck mass [None]

NARRATIVE: CASE EVENT DATE: 20171227
